FAERS Safety Report 5624873-X (Version None)
Quarter: 2008Q1

REPORT INFORMATION
  Report Type: 
  Country: None (occurrence: None)
  Receive Date: 20080213
  Receipt Date: 20080201
  Transmission Date: 20080703
  Serious: Yes (Other)
  Sender: FDA-Public Use
  Company Number: US-PFIZER INC-2007103270

PATIENT
  Sex: Female
  Weight: 70 kg

DRUGS (12)
  1. CHANTIX [Suspect]
     Indication: SMOKING CESSATION THERAPY
     Route: 048
     Dates: start: 20070904, end: 20071205
  2. ALLERGY MEDICATION [Concomitant]
  3. SKELAXIN [Concomitant]
  4. HYDROCODONE BITARTRATE [Concomitant]
  5. EFFEXOR XR [Concomitant]
  6. HERBAL PREPARATION [Concomitant]
     Indication: LIBIDO DECREASED
  7. VALIUM [Concomitant]
  8. DETROL LA [Concomitant]
  9. VITAMIN CAP [Concomitant]
  10. ADDERALL 10 [Concomitant]
  11. PROVIGIL [Concomitant]
  12. LIDOCAINE HYDROCHLORIDE [Concomitant]

REACTIONS (10)
  - AGITATION [None]
  - ANORGASMIA [None]
  - ANXIETY [None]
  - DEPRESSION [None]
  - INSOMNIA [None]
  - IRRITABILITY [None]
  - NAUSEA [None]
  - RESTLESSNESS [None]
  - SNEEZING [None]
  - WEIGHT DECREASED [None]
